FAERS Safety Report 4286163-X (Version None)
Quarter: 2004Q1

REPORT INFORMATION
  Report Type: 
  Country: None (occurrence: None)
  Receive Date: 20040204
  Receipt Date: 20040204
  Transmission Date: 20041129
  Serious: Yes (Hospitalization)
  Sender: FDA-Public Use
  Company Number: None

PATIENT
  Sex: Male
  Weight: 62.6 kg

DRUGS (13)
  1. CYCLOPHOSPHAMIDE [Suspect]
     Indication: PANCREATIC CARCINOMA METASTATIC
     Dosage: 50 MG QAM ORAL
     Route: 048
     Dates: start: 20040112, end: 20040126
  2. NORCO [Concomitant]
  3. OXYCONTIN [Concomitant]
  4. SENOKOT [Concomitant]
  5. LIPRAM [Concomitant]
  6. SIMETHICONE [Concomitant]
  7. TUMS [Concomitant]
  8. INSULIN [Concomitant]
  9. CORAL CALCIUM [Concomitant]
  10. VIT E [Concomitant]
  11. VIT C [Concomitant]
  12. VIT B [Concomitant]
  13. MEGACE [Concomitant]

REACTIONS (6)
  - ASCITES [None]
  - DEEP VEIN THROMBOSIS [None]
  - DISSEMINATED INTRAVASCULAR COAGULATION [None]
  - DYSPNOEA [None]
  - OEDEMA PERIPHERAL [None]
  - PULMONARY EMBOLISM [None]
